FAERS Safety Report 8736507 (Version 3)
Quarter: 2012Q4

REPORT INFORMATION
  Report Type: Report from Study
  Country: CN (occurrence: CN)
  Receive Date: 20120822
  Receipt Date: 20120912
  Transmission Date: 20130627
  Serious: Yes (Hospitalization)
  Sender: FDA-Public Use
  Company Number: CN-ROCHE-1104641

PATIENT
  Age: 47 Year
  Sex: Female
  Weight: 50 kg

DRUGS (3)
  1. HERCEPTIN [Suspect]
     Indication: BREAST CANCER
     Dosage: most recent dose prior to AE onset on 07/Aug/2012
     Route: 042
     Dates: start: 20120505, end: 20120814
  2. EPIRUBICIN HYDROCHLORIDE [Suspect]
     Indication: BREAST CANCER
     Dosage: most recent dose prior to Ae onset on 30/Jul/2012
     Route: 042
     Dates: start: 20120505, end: 20120814
  3. PACLITAXEL [Suspect]
     Indication: BREAST CANCER
     Dosage: most recent dose prior to AE onset on 07/Aug/2012
     Route: 042
     Dates: start: 20120505, end: 20120807

REACTIONS (1)
  - Upper gastrointestinal haemorrhage [Recovering/Resolving]
